FAERS Safety Report 9757471 (Version 1)
Quarter: 2013Q4

REPORT INFORMATION
  Report Type: Spontaneous
  Country: US (occurrence: US)
  Receive Date: 20131215
  Receipt Date: 20131215
  Transmission Date: 20140711
  Serious: No
  Sender: FDA-Public Use
  Company Number: US-009507513-1312USA002936

PATIENT
  Sex: Male

DRUGS (3)
  1. VICTRELIS [Suspect]
     Indication: MULTIPLE SCLEROSIS
     Dosage: 200 MG, EVERY 8 HOURS
     Route: 048
     Dates: start: 201305
  2. PEGINTRON [Suspect]
     Indication: MULTIPLE SCLEROSIS
     Dosage: 120 MICROGRAM, DAILY
     Route: 058
     Dates: start: 201305
  3. TYLENOL EXTRA STRENGTH [Concomitant]

REACTIONS (3)
  - Influenza like illness [Unknown]
  - Nausea [Unknown]
  - Fatigue [Unknown]
